FAERS Safety Report 9213200 (Version 1)
Quarter: 2013Q1

REPORT INFORMATION
  Report Type: Spontaneous
  Country: US (occurrence: None)
  Receive Date: 20120821
  Receipt Date: 20120821
  Transmission Date: 20140127
  Serious: Yes (Other)
  Sender: FDA-Public Use
  Company Number: RB-38816-2012

PATIENT
  Age: 57 Year
  Sex: Female

DRUGS (1)
  1. MUCINEX [Suspect]
     Indication: EAR DISCOMFORT
     Route: 048
     Dates: start: 20120421

REACTIONS (2)
  - Off label use [None]
  - No adverse event [None]
